FAERS Safety Report 20732066 (Version 3)
Quarter: 2022Q3

REPORT INFORMATION
  Report Type: Spontaneous
  Country: US (occurrence: US)
  Receive Date: 20220420
  Receipt Date: 20220705
  Transmission Date: 20221026
  Serious: Yes (Other)
  Sender: FDA-Public Use
  Company Number: US-BRISTOL-MYERS SQUIBB COMPANY-2022-021869

PATIENT
  Age: 65 Year
  Sex: Male
  Weight: 83.5 kg

DRUGS (3)
  1. POMALYST [Suspect]
     Active Substance: POMALIDOMIDE
     Indication: Plasma cell myeloma
     Dosage: 21DAYS ON, 7 DAYS OFF. 1 CAPSULE DAILY 21/7?31 MAR 2025
     Route: 048
     Dates: start: 20211201
  2. XPOVIO [Suspect]
     Active Substance: SELINEXOR
     Indication: Plasma cell myeloma
     Route: 065
  3. XPOVIO [Suspect]
     Active Substance: SELINEXOR
     Dosage: WEEKLY
     Route: 048
     Dates: start: 20211201

REACTIONS (3)
  - Nausea [Recovering/Resolving]
  - Seizure [Recovering/Resolving]
  - Fall [Unknown]
